FAERS Safety Report 6828176-7 (Version None)
Quarter: 2010Q3

REPORT INFORMATION
  Report Type: 
  Country: None (occurrence: None)
  Receive Date: 20100709
  Receipt Date: 20100629
  Transmission Date: 20110219
  Serious: Yes (Hospitalization)
  Sender: FDA-Public Use
  Company Number: FR-ABBOTT-10P-056-0654575-00

PATIENT
  Sex: Male

DRUGS (8)
  1. LIPANTHYL [Suspect]
     Indication: PRODUCT USED FOR UNKNOWN INDICATION
     Route: 048
     Dates: end: 20090701
  2. SEROPLEX FILM-COATED TABLETS [Suspect]
     Indication: DEPRESSION
     Route: 048
     Dates: start: 20090701, end: 20090720
  3. SEROPLEX FILM-COATED TABLETS [Suspect]
     Route: 048
     Dates: start: 20090720
  4. NORSET [Suspect]
     Indication: DEPRESSION
     Route: 048
     Dates: start: 20090701, end: 20090720
  5. THERALITHE LP [Concomitant]
     Indication: DEPRESSION
     Route: 048
     Dates: start: 19960101
  6. SERESTA [Concomitant]
     Indication: PRODUCT USED FOR UNKNOWN INDICATION
     Route: 048
  7. LARGACTIL [Concomitant]
     Indication: PRODUCT USED FOR UNKNOWN INDICATION
     Route: 048
  8. IMOVANE [Concomitant]
     Indication: PRODUCT USED FOR UNKNOWN INDICATION
     Route: 048

REACTIONS (2)
  - CYTOLYTIC HEPATITIS [None]
  - HYPOMANIA [None]
